FAERS Safety Report 8888172 (Version 1)
Quarter: 2012Q4

REPORT INFORMATION
  Report Type: 
  Country: US (occurrence: US)
  Receive Date: 20121106
  Receipt Date: 20121106
  Transmission Date: 20130627
  Serious: No
  Sender: FDA-Public Use
  Company Number: US-VERTEX PHARMACEUTICAL INC.-2012-024043

PATIENT
  Sex: Female

DRUGS (3)
  1. INCIVEK [Suspect]
     Indication: HEPATITIS C
     Dosage: 750 mg, tid
     Route: 048
     Dates: start: 201209
  2. PEGASYS [Suspect]
     Indication: HEPATITIS C
     Dosage: 600 mg, UNK
     Route: 048
     Dates: start: 201209
  3. RIBAVIRIN [Suspect]
     Indication: HEPATITIS C
     Dosage: 180 ?g/kg, UNK
     Route: 058
     Dates: start: 201209

REACTIONS (4)
  - Mood swings [Not Recovered/Not Resolved]
  - Dry skin [Not Recovered/Not Resolved]
  - Wound [Not Recovered/Not Resolved]
  - Haemorrhoids [Not Recovered/Not Resolved]
